FAERS Safety Report 6864090-9 (Version None)
Quarter: 2010Q3

REPORT INFORMATION
  Report Type: 
  Country: None (occurrence: None)
  Receive Date: 20100721
  Receipt Date: 20080506
  Transmission Date: 20110219
  Serious: No
  Sender: FDA-Public Use
  Company Number: US-PFIZER INC-2008024335

PATIENT
  Sex: Female
  Weight: 81.818 kg

DRUGS (2)
  1. CHANTIX [Suspect]
     Indication: SMOKING CESSATION THERAPY
     Dates: start: 20080101
  2. ANTIBIOTICS [Concomitant]
     Indication: BRONCHITIS

REACTIONS (3)
  - DIARRHOEA [None]
  - INCORRECT DOSE ADMINISTERED [None]
  - MENTAL IMPAIRMENT [None]
